FAERS Safety Report 4856247-3 (Version None)
Quarter: 2005Q4

REPORT INFORMATION
  Report Type: 
  Country: None (occurrence: None)
  Receive Date: 20051215
  Receipt Date: 20051201
  Transmission Date: 20060501
  Serious: Yes (Hospitalization)
  Sender: FDA-Public Use
  Company Number: GBR-2005-0002010

PATIENT
  Age: 20 Year
  Sex: Female

DRUGS (1)
  1. HYDROMORPHONE HCL [Suspect]
     Indication: ARTHRALGIA
     Dosage: 64 MG, DAILY, ORAL
     Route: 048

REACTIONS (2)
  - ADRENAL CORTICAL INSUFFICIENCY [None]
  - BLOOD GONADOTROPHIN DECREASED [None]
